FAERS Safety Report 7039496-8 (Version None)
Quarter: 2010Q4

REPORT INFORMATION
  Report Type: 
  Country: None (occurrence: None)
  Receive Date: 20101012
  Receipt Date: 20100929
  Transmission Date: 20110411
  Serious: Yes (Hospitalization, Other)
  Sender: FDA-Public Use
  Company Number: GB-ELI_LILLY_AND_COMPANY-GB201010000200

PATIENT
  Sex: Male
  Weight: 85 kg

DRUGS (21)
  1. GEMCITABINE HCL [Suspect]
     Indication: DIFFUSE LARGE B-CELL LYMPHOMA
     Dosage: 1444 MG, DAY ONE AND EIGHT
     Route: 042
     Dates: start: 20100908, end: 20100915
  2. CYCLOPHOSPHAMIDE [Suspect]
     Indication: DIFFUSE LARGE B-CELL LYMPHOMA
     Dosage: 1500 MG, SINGLE DOSE
     Route: 042
     Dates: start: 20100908, end: 20100908
  3. VINCRISTINE [Suspect]
     Indication: DIFFUSE LARGE B-CELL LYMPHOMA
     Dosage: 2 MG, OTHER
     Route: 042
     Dates: start: 20100908, end: 20100908
  4. PREDNISOLONE [Suspect]
     Indication: DIFFUSE LARGE B-CELL LYMPHOMA
     Dosage: 100 MG, OTHER
     Route: 048
     Dates: start: 20100908, end: 20100912
  5. RITUXIMAB [Suspect]
     Indication: DIFFUSE LARGE B-CELL LYMPHOMA
     Dosage: 800 MG, SINGLE DOSE
     Route: 042
     Dates: start: 20100908, end: 20100908
  6. PEGFILGRASTIM [Suspect]
     Indication: DIFFUSE LARGE B-CELL LYMPHOMA
     Dosage: 6 MG, UNK
     Route: 058
     Dates: start: 20100916, end: 20100916
  7. SANDOCAL /00177201/ [Concomitant]
     Indication: BLOOD POTASSIUM
     Dosage: 1 D/F, 2/D
     Route: 048
     Dates: start: 20100925
  8. ALLOPURINOL [Concomitant]
     Dosage: 300 MG, DAILY (1/D)
     Route: 048
     Dates: start: 20100925
  9. SENOKOT [Concomitant]
     Dosage: 75 MG, DAILY (1/D)
     Route: 048
     Dates: start: 20100925
  10. FERROUS SULFATE TAB [Concomitant]
     Dosage: 200 MG, 3/D
     Route: 048
     Dates: start: 20100925
  11. MORPHINE [Concomitant]
     Indication: PAIN
     Dosage: 10 MG, AS NEEDED
     Route: 058
     Dates: start: 20100925
  12. METOCLOPRAMIDE [Concomitant]
     Indication: NAUSEA
     Dosage: 10 MG, AS NEEDED
     Route: 058
     Dates: start: 20100925
  13. MIDAZOLAM HCL [Concomitant]
     Indication: AGITATION
     Dosage: 2 MG, AS NEEDED
     Dates: start: 20100925
  14. PARACETAMOL [Concomitant]
     Indication: PAIN
     Dosage: 500 MG, AS NEEDED
     Route: 042
     Dates: start: 20100925, end: 20100928
  15. HYDROCORTISONE [Concomitant]
     Dosage: 50 MG, DAILY (1/D)
     Route: 042
     Dates: start: 20100925, end: 20100928
  16. SIMVASTATIN [Concomitant]
     Indication: BLOOD CHOLESTEROL INCREASED
     Dosage: 40 MG, DAILY (1/D)
     Route: 048
     Dates: start: 20100925, end: 20100928
  17. FELODIPINE [Concomitant]
     Indication: HYPERTENSION
     Dosage: 2.5 MG, DAILY (1/D)
     Route: 048
     Dates: start: 20100925, end: 20100928
  18. RAMIPRIL [Concomitant]
     Indication: HYPERTENSION
     Dosage: 5 MG, DAILY (1/D)
     Route: 048
     Dates: start: 20100925, end: 20100928
  19. FUROSEMIDE [Concomitant]
     Indication: HYPERTENSION
     Dosage: 20 MG, 2/D
     Route: 048
     Dates: start: 20100925, end: 20100928
  20. LANSOPRAZOLE [Concomitant]
     Indication: DYSPEPSIA
     Dosage: 30 MG, DAILY (1/D)
     Route: 048
     Dates: start: 20100925, end: 20100928
  21. TEICOPLANIN [Concomitant]
     Indication: INFECTION
     Dosage: 400 MG, DAILY (1/D)
     Route: 042
     Dates: start: 20100927, end: 20100928

REACTIONS (2)
  - NEUTROPENIC INFECTION [None]
  - PANCYTOPENIA [None]
